FAERS Safety Report 11883247 (Version 3)
Quarter: 2016Q1

REPORT INFORMATION
  Report Type: Spontaneous
  Country: JP (occurrence: JP)
  Receive Date: 20151231
  Receipt Date: 20160317
  Transmission Date: 20160526
  Serious: Yes (Death, Hospitalization, Other)
  Sender: FDA-Public Use
  Company Number: JP-GILEAD-2015-0189490

PATIENT
  Age: 82 Year
  Sex: Female
  Weight: 48.3 kg

DRUGS (16)
  1. THYRADIN S [Concomitant]
     Active Substance: LEVOTHYROXINE SODIUM
     Indication: HYPOTHYROIDISM
     Dosage: 1 DF, UNK
     Route: 048
     Dates: start: 20070620
  2. NEXIUM [Concomitant]
     Active Substance: ESOMEPRAZOLE MAGNESIUM
     Dosage: 20 MG, AFTER BREAKFAST
     Route: 048
     Dates: end: 20151217
  3. ACTONEL [Concomitant]
     Active Substance: RISEDRONATE SODIUM
     Dosage: 17.5 MG, AT THE TIME OF AWAKENING, TOOK ON FRIDAY
     Route: 048
     Dates: end: 20151217
  4. RYTHMODAN                          /00271801/ [Concomitant]
     Active Substance: DISOPYRAMIDE
     Dosage: 100 MG, BID, AFTER BREAKFAST AND DINNER
     Route: 048
     Dates: end: 20151217
  5. SIGMART [Concomitant]
     Active Substance: NICORANDIL
     Dosage: 5 MG, BID, AFTER BREAKFAST AND DINNER
     Route: 048
     Dates: end: 20151217
  6. DEPAS [Concomitant]
     Active Substance: ETIZOLAM
     Dosage: 0.5 MG, QD, AT BEDTIME
     Route: 048
     Dates: end: 20151217
  7. LOXONIN [Concomitant]
     Active Substance: LOXOPROFEN SODIUM
     Dosage: 1.8 G, PRN
     Route: 048
  8. HARVONI [Suspect]
     Active Substance: LEDIPASVIR\SOFOSBUVIR
     Indication: CHRONIC HEPATITIS C
     Dosage: 1 DF, UNK
     Route: 048
     Dates: start: 20151208, end: 20151217
  9. MEDITRANS [Concomitant]
     Dosage: 27 MG, IN THE EVENING (APPLY AFTER TAKING A BATH)
     Route: 003
     Dates: end: 20151217
  10. MYSLEE [Concomitant]
     Active Substance: ZOLPIDEM TARTRATE
     Dosage: 5 MG, QD, AT BEDTIME
     Route: 048
     Dates: end: 20151217
  11. SWORD [Concomitant]
     Dosage: 200 MG, PRN
     Route: 048
  12. CYLOCK [Concomitant]
     Dosage: 1 G, PRN
     Route: 048
  13. SOLON                              /00016201/ [Concomitant]
     Dosage: 0.4 G, PRN
     Route: 048
  14. BAYASPIRIN [Concomitant]
     Active Substance: ASPIRIN
     Dosage: 100 MG, QD, AFTER BREAKFAST
     Route: 048
     Dates: end: 20151217
  15. HERBESSER [Concomitant]
     Active Substance: DILTIAZEM HYDROCHLORIDE
     Dosage: 100 MG, BID, AFTER BREAKFAST AND DINNER
     Route: 048
     Dates: end: 20151217
  16. LIVOSTIN [Concomitant]
     Active Substance: LEVOCABASTINE HYDROCHLORIDE
     Dosage: UNK, QID
     Route: 031

REACTIONS (4)
  - Erythema [Recovering/Resolving]
  - Acute myocardial infarction [Fatal]
  - Purpura [Recovering/Resolving]
  - Pyelonephritis [Not Recovered/Not Resolved]

NARRATIVE: CASE EVENT DATE: 20151215
